FAERS Safety Report 10029436 (Version 1)
Quarter: 2014Q1

REPORT INFORMATION
  Report Type: Spontaneous
  Country: GB (occurrence: GB)
  Receive Date: 20140322
  Receipt Date: 20140322
  Transmission Date: 20141002
  Serious: Yes (Other)
  Sender: FDA-Public Use
  Company Number: PHHY2014GB032311

PATIENT
  Sex: 0

DRUGS (4)
  1. MYCOPHENOLATE [Suspect]
     Indication: IMMUNOSUPPRESSION
  2. CORTICOSTEROIDS [Suspect]
     Indication: PLASMA CELL MYELOMA
  3. THALIDOMIDE [Suspect]
  4. IMATINIB [Concomitant]

REACTIONS (4)
  - Scleroderma [Recovered/Resolved]
  - Chronic graft versus host disease [Unknown]
  - Restrictive pulmonary disease [Unknown]
  - Joint range of motion decreased [Recovered/Resolved]
